APPROVED DRUG PRODUCT: DICLOXACILLIN SODIUM
Active Ingredient: DICLOXACILLIN SODIUM
Strength: EQ 250MG BASE
Dosage Form/Route: CAPSULE;ORAL
Application: A216845 | Product #001 | TE Code: AB
Applicant: AUROBINDO PHARMA LTD
Approved: Sep 23, 2022 | RLD: No | RS: No | Type: RX